FAERS Safety Report 19361387 (Version 1)
Quarter: 2021Q2

REPORT INFORMATION
  Report Type: Spontaneous
  Country: CA (occurrence: CA)
  Receive Date: 20210601
  Receipt Date: 20210601
  Transmission Date: 20210717
  Serious: Yes (Hospitalization, Other)
  Sender: FDA-Public Use
  Company Number: NVSC2021CA119774

PATIENT
  Age: 73 Year
  Sex: Female
  Weight: 113 kg

DRUGS (2)
  1. APO?AMOXI CLAV [Suspect]
     Active Substance: AMOXICILLIN\CLAVULANATE POTASSIUM
     Indication: URINARY TRACT INFECTION
     Dosage: 875 MG, BID
     Route: 048
  2. SANDOZ PANTOPRAZOLE [Suspect]
     Active Substance: PANTOPRAZOLE SODIUM
     Indication: OESOPHAGITIS
     Dosage: 40 MG, BID (DELAYED RELASE TABLET)
     Route: 048

REACTIONS (4)
  - Clostridium difficile infection [Unknown]
  - Abdominal pain [Unknown]
  - Diarrhoea [Unknown]
  - Rectal haemorrhage [Unknown]
